FAERS Safety Report 4690656-0 (Version None)
Quarter: 2005Q2

REPORT INFORMATION
  Report Type: 
  Country: None (occurrence: None)
  Receive Date: 20050615
  Receipt Date: 20050602
  Transmission Date: 20051028
  Serious: Yes (Death)
  Sender: FDA-Public Use
  Company Number: FR-GLAXOSMITHKLINE-B0383703A

PATIENT

DRUGS (2)
  1. DEROXAT [Suspect]
  2. LEXOMIL [Suspect]
     Indication: DEPRESSION
     Dosage: 1UNIT SEE DOSAGE TEXT

REACTIONS (2)
  - DRUG EXPOSURE DURING PREGNANCY [None]
  - INTRA-UTERINE DEATH [None]
